FAERS Safety Report 20508323 (Version 18)
Quarter: 2025Q4

REPORT INFORMATION
  Report Type: Report from Study
  Country: US (occurrence: US)
  Receive Date: 20220223
  Receipt Date: 20251216
  Transmission Date: 20260118
  Serious: Yes (Other)
  Sender: PFIZER
  Company Number: US-PFIZER INC-202200269238

PATIENT
  Age: 77 Year
  Sex: Male
  Weight: 110.5 kg

DRUGS (10)
  1. BOSULIF [Suspect]
     Active Substance: BOSUTINIB MONOHYDRATE
     Indication: Chronic myeloid leukaemia
     Dosage: 200 MG, DAILY
     Dates: start: 20181013
  2. BOSULIF [Suspect]
     Active Substance: BOSUTINIB MONOHYDRATE
     Dosage: 100MG TAKE 1 TABLET BY MOUTH IN THE MORNING, AND 1 TABLET EVERY NIGHT AT BEDTIME
     Route: 048
     Dates: start: 2019
  3. ELIQUIS [Suspect]
     Active Substance: APIXABAN
     Dosage: UNK
  4. CARVEDILOL [Concomitant]
     Active Substance: CARVEDILOL
     Dosage: UNK
     Dates: start: 2019
  5. CIPROFLOXACIN [Concomitant]
     Active Substance: CIPROFLOXACIN
     Dosage: UNK
     Dates: start: 2023
  6. EZETIMIBE [Concomitant]
     Active Substance: EZETIMIBE
     Dosage: UNK
     Dates: start: 2023
  7. LEVOTHYROXINE [Concomitant]
     Active Substance: LEVOTHYROXINE
     Dosage: UNK
     Dates: start: 2022
  8. LISINOPRIL [Concomitant]
     Active Substance: LISINOPRIL
     Dosage: UNK
     Dates: start: 2019
  9. ROSUVASTATIN [Concomitant]
     Active Substance: ROSUVASTATIN
     Dosage: UNK
     Dates: start: 2019
  10. APIXABAN [Concomitant]
     Active Substance: APIXABAN
     Dosage: UNK

REACTIONS (9)
  - Transient ischaemic attack [Recovered/Resolved]
  - Off label use [Unknown]
  - Fatigue [Not Recovered/Not Resolved]
  - Back pain [Recovering/Resolving]
  - Muscular weakness [Recovering/Resolving]
  - Speech disorder [Unknown]
  - Rash [Not Recovered/Not Resolved]
  - Haematuria [Not Recovered/Not Resolved]
  - Visual impairment [Not Recovered/Not Resolved]

NARRATIVE: CASE EVENT DATE: 20190101
